FAERS Safety Report 21569601 (Version 1)
Quarter: 2022Q4

REPORT INFORMATION
  Report Type: Report from Study
  Country: US (occurrence: US)
  Receive Date: 20221109
  Receipt Date: 20221109
  Transmission Date: 20230112
  Serious: No
  Sender: FDA-Public Use
  Company Number: US-ABBVIE-4192353

PATIENT
  Sex: Male

DRUGS (2)
  1. VENCLEXTA [Suspect]
     Active Substance: VENETOCLAX
     Indication: Acute lymphocytic leukaemia
     Dosage: TAKEN 1 TABLET BY MOUTH DAILY FOR 2 DOSES THEN 2 TABLETS DAILY FOR 16 DAYS WITH FOOD AND WATER TH...
     Route: 048
  2. VENCLEXTA [Suspect]
     Active Substance: VENETOCLAX
     Indication: Acute lymphocytic leukaemia
     Dosage: TAKEN 1 TABLET BY MOUTH DAILY FOR 2 DOSES THEN 2 TABLETS DAILY FOR 16 DAYS WITH FOOD AND WATER TH...
     Route: 048

REACTIONS (1)
  - Drug ineffective [Unknown]
